FAERS Safety Report 6092154-9 (Version None)
Quarter: 2009Q1

REPORT INFORMATION
  Report Type: 
  Country: None (occurrence: None)
  Receive Date: 20090225
  Receipt Date: 20090216
  Transmission Date: 20090719
  Serious: Yes (Hospitalization)
  Sender: FDA-Public Use
  Company Number: FR-WYE-H08323409

PATIENT
  Age: 66 Year
  Sex: Male

DRUGS (4)
  1. CORDARONE [Suspect]
     Route: 048
     Dates: start: 20081118, end: 20081215
  2. CARDENSIEL [Suspect]
     Route: 048
     Dates: start: 20081118, end: 20081215
  3. ALLOPURINOL [Suspect]
     Route: 048
     Dates: end: 20081215
  4. PREVISCAN [Suspect]
     Route: 048
     Dates: start: 20081118, end: 20081215

REACTIONS (1)
  - DRUG RASH WITH EOSINOPHILIA AND SYSTEMIC SYMPTOMS [None]
